FAERS Safety Report 10694830 (Version 1)
Quarter: 2015Q1

REPORT INFORMATION
  Report Type: Spontaneous
  Country: US (occurrence: None)
  Receive Date: 20150105
  Receipt Date: 20150105
  Transmission Date: 20150721
  Serious: Yes (Other)
  Sender: FDA-Public Use
  Company Number: None

PATIENT
  Age: 57 Year
  Sex: Male
  Weight: 92.99 kg

DRUGS (4)
  1. LORAZEPAM. [Concomitant]
     Active Substance: LORAZEPAM
  2. LOSARTAN POTASSIUM. [Suspect]
     Active Substance: LOSARTAN POTASSIUM
     Indication: BLOOD PRESSURE
     Dosage: 30 PILSL 1 DAILY BY MOUTH
     Route: 048
     Dates: start: 20141125, end: 20141129
  3. HYDROCHLOROTHIAZIDE. [Concomitant]
     Active Substance: HYDROCHLOROTHIAZIDE
  4. ALEVE [Concomitant]
     Active Substance: NAPROXEN SODIUM

REACTIONS (7)
  - Lung disorder [None]
  - Unevaluable event [None]
  - Infection [None]
  - Chest pain [None]
  - Myalgia [None]
  - Dyspnoea [None]
  - Pharyngeal oedema [None]

NARRATIVE: CASE EVENT DATE: 20141125
